FAERS Safety Report 7705777-5 (Version None)
Quarter: 2011Q3

REPORT INFORMATION
  Report Type: 
  Country: None (occurrence: None)
  Receive Date: 20110824
  Receipt Date: 20110824
  Transmission Date: 20111222
  Serious: Yes (Other)
  Sender: FDA-Public Use
  Company Number: None

PATIENT
  Sex: Female
  Weight: 98.883 kg

DRUGS (1)
  1. CIPROFLOXACIN [Suspect]
     Indication: GASTROINTESTINAL INFECTION
     Dosage: ONE TABLET
     Route: 048
     Dates: start: 20110816, end: 20110820

REACTIONS (3)
  - DIZZINESS [None]
  - MUSCULOSKELETAL PAIN [None]
  - CONFUSIONAL STATE [None]
